FAERS Safety Report 18481177 (Version 3)
Quarter: 2020Q4

REPORT INFORMATION
  Report Type: Spontaneous
  Country: DE (occurrence: DE)
  Receive Date: 20201109
  Receipt Date: 20201230
  Transmission Date: 20210114
  Serious: Yes (Other)
  Sender: FDA-Public Use
  Company Number: DE-BAUSCH-BL-2020-031924

PATIENT
  Age: 57 Year
  Sex: Female

DRUGS (4)
  1. TIMO EDO 0.5% [Suspect]
     Active Substance: TIMOLOL MALEATE
     Indication: GLAUCOMA
     Route: 047
     Dates: start: 201911, end: 202002
  2. TIMO EDO 0.5% [Suspect]
     Active Substance: TIMOLOL MALEATE
     Dosage: 1 DROP DAILY IN THE EVENING
     Route: 047
     Dates: start: 202004, end: 202010
  3. DEXA EDO [Suspect]
     Active Substance: DEXAMETHASONE SODIUM PHOSPHATE
     Indication: PRODUCT USED FOR UNKNOWN INDICATION
     Route: 065
     Dates: end: 202010
  4. TIM-OPHTAL 0.25% SINE [Suspect]
     Active Substance: TIMOLOL MALEATE
     Indication: GLAUCOMA
     Dosage: USED THIS FOR ABOUT 3-4 DAYS, 1 DAILY IN THE EVENING FOR ONE WEEK
     Route: 047
     Dates: start: 202010, end: 20201024

REACTIONS (18)
  - Abdominal discomfort [Recovering/Resolving]
  - Libido decreased [Recovering/Resolving]
  - Muscle spasms [Recovering/Resolving]
  - Abdominal pain upper [Recovering/Resolving]
  - Gait disturbance [Unknown]
  - Headache [Recovering/Resolving]
  - Bone pain [Recovering/Resolving]
  - Myalgia [Recovering/Resolving]
  - Alopecia [Recovering/Resolving]
  - Feeling cold [Recovered/Resolved]
  - Peripheral coldness [Recovered/Resolved]
  - Helicobacter infection [Recovered/Resolved]
  - Insomnia [Recovered/Resolved]
  - Palpitations [Recovered/Resolved]
  - Nightmare [Recovering/Resolving]
  - Arthralgia [Recovered/Resolved]
  - Urticaria [Not Recovered/Not Resolved]
  - Hypotension [Not Recovered/Not Resolved]

NARRATIVE: CASE EVENT DATE: 2020
